FAERS Safety Report 15511605 (Version 1)
Quarter: 2018Q4

REPORT INFORMATION
  Report Type: Spontaneous
  Country: US (occurrence: US)
  Receive Date: 20181011
  Receipt Date: 20181011
  Transmission Date: 20190205
  Serious: Yes (Hospitalization)
  Sender: FDA-Public Use
  Company Number: None

PATIENT
  Age: 46 Year
  Weight: 121.5 kg

DRUGS (4)
  1. TAXOL [Suspect]
     Active Substance: PACLITAXEL
     Dates: end: 20180926
  2. IFOSFAMIDE. [Suspect]
     Active Substance: IFOSFAMIDE
     Dates: end: 20180926
  3. CISPLATIN (119875) [Suspect]
     Active Substance: CISPLATIN
     Dates: end: 20180926
  4. G-CSF (FILGRASTIM, AMGEN) [Suspect]
     Active Substance: FILGRASTIM
     Dates: end: 20180726

REACTIONS (2)
  - Blood potassium [None]
  - Adverse event [None]

NARRATIVE: CASE EVENT DATE: 20181008
